FAERS Safety Report 11031497 (Version 2)
Quarter: 2015Q4

REPORT INFORMATION
  Report Type: Spontaneous
  Country: US (occurrence: US)
  Receive Date: 20150415
  Receipt Date: 20151120
  Transmission Date: 20160304
  Serious: No
  Sender: FDA-Public Use
  Company Number: US-PFIZER INC-2015127984

PATIENT
  Age: 54 Year
  Sex: Female

DRUGS (1)
  1. CELEBREX [Suspect]
     Active Substance: CELECOXIB
     Dosage: UNK
     Dates: start: 20150319

REACTIONS (1)
  - Drug hypersensitivity [Unknown]
